FAERS Safety Report 7382224-7 (Version None)
Quarter: 2011Q1

REPORT INFORMATION
  Report Type: 
  Country: None (occurrence: None)
  Receive Date: 20110329
  Receipt Date: 20110125
  Transmission Date: 20110831
  Serious: Yes (Other)
  Sender: FDA-Public Use
  Company Number: US-BAYER-200940307NA

PATIENT
  Sex: Female

DRUGS (12)
  1. WELLBUTRIN [Concomitant]
     Dosage: 150 MG, QD
     Route: 048
  2. DIOVAN [Concomitant]
     Dosage: 80 MG, QD
     Route: 048
  3. COUMADIN [Concomitant]
     Dosage: 2.5 MG/EVERY MONDAY
     Route: 048
  4. GLIPIZIDE [Concomitant]
     Dosage: 5 MG/ MORNING AND 10 MG/EVENING
     Route: 048
  5. DILTIAZEM [Concomitant]
     Dosage: 180 MG, QD
     Route: 048
  6. ATENOLOL [Concomitant]
     Dosage: 25 MG, QD
     Route: 048
  7. TRASYLOL [Suspect]
     Indication: PRODUCT USED FOR UNKNOWN INDICATION
     Dosage: 1 ML, UNK
     Route: 042
     Dates: start: 20060208
  8. LEVOTHYROXINE SODIUM [Concomitant]
     Dosage: 0.01 MG, QD
     Route: 048
  9. NITROFURANTOIN [Concomitant]
     Dosage: NOON
     Route: 048
  10. TRIAMTERENE [Concomitant]
     Dosage: 70/50 MG/DAILY
     Route: 048
  11. PRILOSEC [Concomitant]
     Dosage: 20 MG, BID
     Route: 048
  12. COUMADIN [Concomitant]
     Dosage: 3.5 MG/EVERY MONDAY
     Route: 048

REACTIONS (11)
  - RENAL FAILURE [None]
  - RENAL INJURY [None]
  - FEAR [None]
  - UNEVALUABLE EVENT [None]
  - PAIN [None]
  - INJURY [None]
  - EMOTIONAL DISTRESS [None]
  - RENAL IMPAIRMENT [None]
  - ANHEDONIA [None]
  - STRESS [None]
  - ANXIETY [None]
